FAERS Safety Report 8207439-7 (Version None)
Quarter: 2012Q1

REPORT INFORMATION
  Report Type: 
  Country: None (occurrence: None)
  Receive Date: 20120314
  Receipt Date: 20120306
  Transmission Date: 20120608
  Serious: Yes (Other)
  Sender: FDA-Public Use
  Company Number: JP-ASTELLAS-2012JP002051

PATIENT
  Age: 20 Year
  Sex: Male

DRUGS (7)
  1. FOSCAVIR [Concomitant]
     Indication: MYELITIS
     Dosage: 90 MG/KG, BID
     Route: 065
  2. METHOTREXATE [Concomitant]
     Indication: PROPHYLAXIS AGAINST GRAFT VERSUS HOST DISEASE
     Route: 065
  3. PROGRAF [Suspect]
     Indication: PROPHYLAXIS AGAINST GRAFT VERSUS HOST DISEASE
     Dosage: UNK
     Route: 065
  4. MELPHALAN HYDROCHLORIDE [Concomitant]
     Indication: BONE MARROW CONDITIONING REGIMEN
     Route: 065
  5. METHYLPREDNISOLONE [Concomitant]
     Indication: GRAFT VERSUS HOST DISEASE IN SKIN
     Dosage: 1 MG/KG, UNKNOWN/D
     Route: 065
  6. METHYLPREDNISOLONE [Concomitant]
     Dosage: 1 MG/KG, UNKNOWN/D
     Route: 065
  7. METHYLPREDNISOLONE [Concomitant]
     Indication: GRAFT VERSUS HOST DISEASE IN INTESTINE
     Dosage: 0.5 MG/KG, UNKNOWN/D
     Route: 065

REACTIONS (5)
  - MYELITIS [None]
  - HUMAN HERPES VIRUS 6 SEROLOGY POSITIVE [None]
  - DRUG INEFFECTIVE [None]
  - GRAFT VERSUS HOST DISEASE IN SKIN [None]
  - GRAFT VERSUS HOST DISEASE IN INTESTINE [None]
